FAERS Safety Report 22226141 (Version 1)
Quarter: 2023Q2

REPORT INFORMATION
  Report Type: Spontaneous
  Country: US (occurrence: US)
  Receive Date: 20230419
  Receipt Date: 20230419
  Transmission Date: 20230721
  Serious: Yes (Other)
  Sender: FDA-Public Use
  Company Number: US-PFIZER INC-PV202300063102

PATIENT
  Age: 70 Year

DRUGS (1)
  1. TIKOSYN [Suspect]
     Active Substance: DOFETILIDE
     Dosage: 250 UG, DAILY (TAKE ONE CAPSULE BY MOUTH ONCE DAILY)
     Route: 048

REACTIONS (2)
  - Cataract [Unknown]
  - Off label use [Unknown]
